FAERS Safety Report 18101428 (Version 1)
Quarter: 2020Q3

REPORT INFORMATION
  Report Type: Spontaneous
  Country: GB (occurrence: GB)
  Receive Date: 20200801
  Receipt Date: 20200801
  Transmission Date: 20201103
  Serious: Yes (Hospitalization, Other)
  Sender: FDA-Public Use
  Company Number: GB-SA-2020SA194815

PATIENT

DRUGS (7)
  1. FERROUS FUMARATE [Concomitant]
     Active Substance: FERROUS FUMARATE
  2. COLECALCIFEROL [Concomitant]
     Active Substance: CHOLECALCIFEROL
  3. LEVOTHYROXINE. [Concomitant]
     Active Substance: LEVOTHYROXINE
  4. IRBESARTAN. [Suspect]
     Active Substance: IRBESARTAN
     Dosage: UNK
     Route: 048
     Dates: end: 20200712
  5. MIRABEGRON [Concomitant]
     Active Substance: MIRABEGRON
  6. EDOXABAN [Concomitant]
     Active Substance: EDOXABAN TOSYLATE
  7. OMEPRAZOLE. [Concomitant]
     Active Substance: OMEPRAZOLE

REACTIONS (1)
  - Acute kidney injury [Not Recovered/Not Resolved]
